FAERS Safety Report 8881810 (Version 6)
Quarter: 2013Q2

REPORT INFORMATION
  Report Type: Spontaneous
  Country: US (occurrence: US)
  Receive Date: 20121102
  Receipt Date: 20130522
  Transmission Date: 20140414
  Serious: Yes (Death, Hospitalization, Other)
  Sender: FDA-Public Use
  Company Number: US-009507513-1210USA010419

PATIENT
  Sex: Female
  Weight: 58.96 kg

DRUGS (2)
  1. FOSAMAX [Suspect]
     Indication: OSTEOPOROSIS
     Dosage: 70 MG, QW
     Route: 048
     Dates: start: 2002, end: 2007
  2. FOSAMAX [Suspect]
     Dosage: 35 MG, UNK
     Route: 048
     Dates: start: 2002

REACTIONS (77)
  - Haemorrhoids [Unknown]
  - Diverticulum [Unknown]
  - Overweight [Unknown]
  - Cushingoid [Unknown]
  - Fall [Unknown]
  - Vision blurred [Unknown]
  - Vertebroplasty [Not Recovered/Not Resolved]
  - Pain [Not Recovered/Not Resolved]
  - Dyspnoea [Unknown]
  - Kyphosis [Not Recovered/Not Resolved]
  - Intervertebral disc degeneration [Unknown]
  - Spinal fracture [Unknown]
  - Erosive duodenitis [Unknown]
  - Deep vein thrombosis [Unknown]
  - Deep vein thrombosis [Unknown]
  - Spinal compression fracture [Unknown]
  - Pleural fibrosis [Unknown]
  - Cholelithiasis [Unknown]
  - Adverse drug reaction [Unknown]
  - Hyperparathyroidism [Unknown]
  - Ankle fracture [Unknown]
  - Muscular weakness [Unknown]
  - Depression [Unknown]
  - Asthenia [Unknown]
  - Gastrooesophageal reflux disease [Unknown]
  - Erosive oesophagitis [Unknown]
  - Dysphagia [Unknown]
  - Femur fracture [Unknown]
  - Fall [Unknown]
  - Femoral neck fracture [Unknown]
  - Pneumonia aspiration [Fatal]
  - Osteoporosis [Fatal]
  - Cholecystectomy [Unknown]
  - Disease complication [Fatal]
  - Fall [Unknown]
  - Tibia fracture [Unknown]
  - Fibula fracture [Unknown]
  - Closed fracture manipulation [Unknown]
  - Arterial stent insertion [Unknown]
  - Hip fracture [Unknown]
  - Femur fracture [Unknown]
  - Fracture malunion [Unknown]
  - Fracture nonunion [Unknown]
  - Skin cancer [Unknown]
  - Renal transplant [Unknown]
  - Low turnover osteopathy [Unknown]
  - Polymyositis [Not Recovered/Not Resolved]
  - Atrial fibrillation [Unknown]
  - Deep vein thrombosis [Unknown]
  - Joint stiffness [Unknown]
  - Peripheral vascular disorder [Unknown]
  - Spinal compression fracture [Unknown]
  - Abasia [Unknown]
  - Depression [Unknown]
  - Angiodysplasia [Unknown]
  - Cholelithiasis [Unknown]
  - Diastolic dysfunction [Unknown]
  - Hypertension [Unknown]
  - Hypothyroidism [Unknown]
  - Dyslipidaemia [Unknown]
  - Gastrointestinal haemorrhage [Unknown]
  - Urinary tract infection [Unknown]
  - Choking [Unknown]
  - Blood pressure increased [Unknown]
  - Escherichia urinary tract infection [Unknown]
  - Upper respiratory tract infection [Unknown]
  - Gastrointestinal sounds abnormal [Unknown]
  - Blood albumin abnormal [Unknown]
  - Anaemia [Unknown]
  - Candida infection [Unknown]
  - Osteoarthritis [Unknown]
  - Hyperkalaemia [Unknown]
  - Wound [Unknown]
  - Asthma [Unknown]
  - Ulcer [Unknown]
  - Pain [Unknown]
  - Skin disorder [Unknown]
